FAERS Safety Report 10257042 (Version 2)
Quarter: 2014Q2

REPORT INFORMATION
  Report Type: Report from Study
  Country: US (occurrence: US)
  Receive Date: 20140625
  Receipt Date: 20140625
  Transmission Date: 20141212
  Serious: Yes (Hospitalization)
  Sender: FDA-Public Use
  Company Number: US-BIOGENIDEC-2013BI121608

PATIENT
  Age: 46 Year
  Sex: Male
  Weight: 76 kg

DRUGS (2)
  1. RFVIIIFC [Suspect]
     Indication: FACTOR VIII DEFICIENCY
     Route: 042
     Dates: start: 20120111, end: 20131214
  2. RFVIIIFC [Suspect]
     Indication: FACTOR VIII DEFICIENCY

REACTIONS (1)
  - Haemophilic arthropathy [Recovered/Resolved]
